FAERS Safety Report 7467211-2 (Version None)
Quarter: 2011Q2

REPORT INFORMATION
  Report Type: 
  Country: None (occurrence: None)
  Receive Date: 20110509
  Receipt Date: 20110504
  Transmission Date: 20111010
  Serious: Yes (Life-Threatening, Hospitalization, Other)
  Sender: FDA-Public Use
  Company Number: PHHY2011FR33127

PATIENT
  Sex: Male
  Weight: 92 kg

DRUGS (14)
  1. LANTUS [Concomitant]
     Dosage: 22 IU, QID
     Dates: start: 20080101
  2. LEXOMIL [Concomitant]
     Dosage: 0.5 DF, QD
  3. LEVOTHYROXINE SODIUM [Concomitant]
     Dosage: 100 MG, QD
  4. FLUDROCORTISONE [Concomitant]
     Dosage: 50 MG, QD
  5. REPAGLINIDE [Concomitant]
     Dosage: 4 MG, TID
  6. CREON [Concomitant]
     Dosage: 12000 UNK, TID
  7. TAREG [Concomitant]
     Dosage: 160 MG, QD
  8. ARANESP [Concomitant]
     Dosage: 150 UNK, WEEKLY
  9. ACTOS [Concomitant]
     Dosage: 30 MG, QD
  10. AFINITOR [Suspect]
     Indication: RENAL CANCER
     Dosage: 10 MG, DAILY
     Route: 048
     Dates: start: 20110104, end: 20110419
  11. XANAX [Concomitant]
     Dosage: 0.5 DF, BID
  12. HYDROCORTISONE [Concomitant]
     Dosage: 20 MG, DAILY
  13. LIPANTHYL [Concomitant]
     Dosage: 145 MG, QD
  14. ESOMEPRAZOLE [Concomitant]
     Dosage: 20 MG, QD

REACTIONS (5)
  - GLOMERULAR FILTRATION RATE DECREASED [None]
  - ASTHENIA [None]
  - INFECTION [None]
  - SEPTIC SHOCK [None]
  - OEDEMA [None]
